FAERS Safety Report 5283786-6 (Version None)
Quarter: 2007Q1

REPORT INFORMATION
  Report Type: 
  Country: None (occurrence: None)
  Receive Date: 20061226
  Receipt Date: 20060222
  Transmission Date: 20070707
  Serious: Yes (Other)
  Sender: FDA-Public Use
  Company Number: 2006S1000047

PATIENT
  Age: 57 Year
  Sex: Male
  Weight: 100.0181 kg

DRUGS (1)
  1. SORIATANE [Suspect]
     Indication: PSORIASIS
     Dosage: 25 MG; PO
     Route: 048
     Dates: start: 20020101, end: 20051201

REACTIONS (1)
  - SPINAL DISORDER [None]
